FAERS Safety Report 8902674 (Version 1)
Quarter: 2012Q4

REPORT INFORMATION
  Report Type: 
  Country: IN (occurrence: IN)
  Receive Date: 20121112
  Receipt Date: 20121112
  Transmission Date: 20130627
  Serious: Yes (Other)
  Sender: FDA-Public Use
  Company Number: PHHY2012IN103918

PATIENT
  Age: 45 Year
  Sex: Female

DRUGS (1)
  1. ACLASTA [Suspect]
     Indication: OSTEOPOROSIS
     Dosage: 5 mg/100ml, UNK
     Route: 042
     Dates: start: 20120919

REACTIONS (6)
  - Urinary tract infection [Recovering/Resolving]
  - Mouth ulceration [Recovering/Resolving]
  - Aphagia [Recovering/Resolving]
  - Skin discolouration [Recovering/Resolving]
  - Abdominal pain upper [Recovering/Resolving]
  - Pain in extremity [Recovering/Resolving]
